FAERS Safety Report 25996116 (Version 1)
Quarter: 2025Q4

REPORT INFORMATION
  Report Type: Spontaneous
  Country: US (occurrence: None)
  Receive Date: 20251104
  Receipt Date: 20251104
  Transmission Date: 20260117
  Serious: No
  Sender: FDA-CTU
  Company Number: None

PATIENT
  Age: 32 Year
  Sex: Female

DRUGS (1)
  1. L-GLUTAMINE [Suspect]
     Active Substance: GLUTAMINE
     Indication: Sickle cell disease
     Dosage: FREQUENCY : TWICE A DAY;?
     Route: 048
     Dates: start: 20250925

REACTIONS (4)
  - Postpartum haemorrhage [None]
  - Sickle cell anaemia with crisis [None]
  - Therapy interrupted [None]
  - Product availability issue [None]

NARRATIVE: CASE EVENT DATE: 20251020
